FAERS Safety Report 15977908 (Version 1)
Quarter: 2019Q1

REPORT INFORMATION
  Report Type: Spontaneous
  Country: US (occurrence: US)
  Receive Date: 20190215
  Receipt Date: 20190215
  Transmission Date: 20190418
  Serious: No
  Sender: FDA-Public Use
  Company Number: None

PATIENT

DRUGS (1)
  1. NEILMED SINUS RINSE [Suspect]
     Active Substance: SODIUM BICARBONATE\SODIUM CHLORIDE

REACTIONS (7)
  - Headache [None]
  - Pain [None]
  - Nasal discomfort [None]
  - Ocular hyperaemia [None]
  - Sinus operation [None]
  - Nasal congestion [None]
  - Product colour issue [None]
